FAERS Safety Report 7250284-X (Version None)
Quarter: 2011Q1

REPORT INFORMATION
  Report Type: 
  Country: None (occurrence: None)
  Receive Date: 20110128
  Receipt Date: 20110120
  Transmission Date: 20110831
  Serious: Yes (Other)
  Sender: FDA-Public Use
  Company Number: DE-AMGEN-DEUSP2010007128

PATIENT
  Age: 84 Year
  Sex: Female
  Weight: 72 kg

DRUGS (6)
  1. URBASON                            /00049601/ [Concomitant]
     Indication: MUSCULOSKELETAL PAIN
     Dosage: 4 MG, QD
     Route: 048
     Dates: start: 20020101
  2. SORTIS                             /01326101/ [Concomitant]
     Indication: HYPERLIPIDAEMIA
     Dosage: 10 MG, QD
     Route: 048
     Dates: start: 20100101
  3. BLOPRESS [Concomitant]
     Indication: HYPERTENSION
     Dosage: 16 MG, QD
     Route: 048
     Dates: start: 20090101
  4. BISOPROLOL [Concomitant]
     Indication: HYPERTENSION
     Dosage: 5 MG, BID
     Route: 048
     Dates: start: 20060101
  5. TORASEMID [Concomitant]
     Indication: CARDIAC FAILURE
     Dosage: 10 MG, UNK
     Dates: start: 20100101
  6. PROLIA [Suspect]
     Indication: OSTEOPOROSIS POSTMENOPAUSAL
     Dosage: UNK
     Dates: start: 20101122

REACTIONS (3)
  - VERTIGO [None]
  - MALAISE [None]
  - HYPERTENSION [None]
